FAERS Safety Report 6404860-4 (Version None)
Quarter: 2009Q4

REPORT INFORMATION
  Report Type: 
  Country: None (occurrence: None)
  Receive Date: 20091019
  Receipt Date: 20091009
  Transmission Date: 20100525
  Serious: Yes (Hospitalization)
  Sender: FDA-Public Use
  Company Number: US-CELGENEUS-163-21880-09100761

PATIENT
  Sex: Male
  Weight: 93.8 kg

DRUGS (3)
  1. REVLIMID [Suspect]
     Route: 048
     Dates: start: 20090113, end: 20090427
  2. DEXAMETHASONE [Suspect]
     Route: 048
     Dates: start: 20090113, end: 20090428
  3. ASPIRIN [Concomitant]
     Indication: DRUG USE FOR UNKNOWN INDICATION
     Route: 048
     Dates: start: 20090113

REACTIONS (3)
  - BACK PAIN [None]
  - MASS [None]
  - MYELOPATHY [None]
